FAERS Safety Report 9919915 (Version 2)
Quarter: 2014Q2

REPORT INFORMATION
  Report Type: Report from Study
  Country: DE (occurrence: DE)
  Receive Date: 20140224
  Receipt Date: 20140513
  Transmission Date: 20141212
  Serious: Yes (Hospitalization, Other)
  Sender: FDA-Public Use
  Company Number: DE-BAYER-2014-028131

PATIENT
  Age: 56 Year
  Sex: Female
  Weight: 68 kg

DRUGS (2)
  1. BETAFERON [Suspect]
     Indication: MULTIPLE SCLEROSIS
     Dosage: 250 ?G, QOD
     Route: 058
     Dates: start: 20020101
  2. L-THYROX [Concomitant]
     Indication: HYPOTHYROIDISM
     Dosage: 50 ?G, OM
     Route: 048

REACTIONS (3)
  - Injection site abscess [Recovered/Resolved]
  - Necrotising fasciitis [None]
  - Skin graft [None]
